FAERS Safety Report 14445435 (Version 2)
Quarter: 2018Q1

REPORT INFORMATION
  Report Type: Spontaneous
  Country: JP (occurrence: JP)
  Receive Date: 20180126
  Receipt Date: 20180213
  Transmission Date: 20180509
  Serious: Yes (Hospitalization)
  Sender: FDA-Public Use
  Company Number: JP-009507513-1801JPN002191J

PATIENT
  Age: 9 Decade
  Sex: Female

DRUGS (2)
  1. BELSOMRA [Suspect]
     Active Substance: SUVOREXANT
     Dosage: 7.5 MG, QD
     Route: 048
     Dates: end: 201801
  2. BELSOMRA [Suspect]
     Active Substance: SUVOREXANT
     Dosage: 15 MG, QD
     Route: 048
     Dates: start: 201712

REACTIONS (3)
  - Adverse event [Unknown]
  - Therapeutic response increased [Recovered/Resolved]
  - Intentional underdose [Unknown]
